FAERS Safety Report 18841796 (Version 1)
Quarter: 2021Q1

REPORT INFORMATION
  Report Type: Spontaneous
  Country: US (occurrence: US)
  Receive Date: 20210204
  Receipt Date: 20210204
  Transmission Date: 20210419
  Serious: No
  Sender: FDA-Public Use
  Company Number: US-ACCORD-194730

PATIENT
  Age: 18 Year
  Sex: Male
  Weight: 63.5 kg

DRUGS (1)
  1. ARIPIPRAZOLE ACCORD [Suspect]
     Active Substance: ARIPIPRAZOLE
     Indication: PSYCHOTIC DISORDER
     Dosage: ONCE DAY
     Route: 048
     Dates: start: 20200801

REACTIONS (5)
  - Somnolence [Unknown]
  - Dysarthria [Unknown]
  - Product dose omission issue [Unknown]
  - Off label use [Unknown]
  - Dysphagia [Unknown]

NARRATIVE: CASE EVENT DATE: 20200801
